FAERS Safety Report 9751265 (Version 1)
Quarter: 2013Q4

REPORT INFORMATION
  Report Type: Spontaneous
  Country: US (occurrence: US)
  Receive Date: 20131212
  Receipt Date: 20131212
  Transmission Date: 20140711
  Serious: No
  Sender: FDA-Public Use
  Company Number: US-BIOGENIDEC-2013BI095133

PATIENT
  Age: 49 Year
  Sex: Female
  Weight: 114 kg

DRUGS (6)
  1. TECFIDERA [Suspect]
     Indication: PRODUCT USED FOR UNKNOWN INDICATION
     Route: 048
  2. TECFIDERA [Suspect]
     Indication: PRODUCT USED FOR UNKNOWN INDICATION
     Route: 048
  3. FISH OIL [Concomitant]
     Indication: FAECAL INCONTINENCE
  4. FISH OIL [Concomitant]
     Indication: DIARRHOEA
  5. SHARK CARTIL [Concomitant]
  6. IMODIUM ADV [Concomitant]

REACTIONS (5)
  - Faecal incontinence [Not Recovered/Not Resolved]
  - Local swelling [Not Recovered/Not Resolved]
  - Skin warm [Not Recovered/Not Resolved]
  - Pain in extremity [Not Recovered/Not Resolved]
  - Diarrhoea [Not Recovered/Not Resolved]
